FAERS Safety Report 5372783-8 (Version None)
Quarter: 2007Q2

REPORT INFORMATION
  Report Type: 
  Country: None (occurrence: None)
  Receive Date: 20070626
  Receipt Date: 20070611
  Transmission Date: 20071010
  Serious: Yes (Hospitalization)
  Sender: FDA-Public Use
  Company Number: DSA_30142_2007

PATIENT
  Age: 85 Year
  Sex: Male

DRUGS (14)
  1. MONO-TILDIEM (MONO-TILDIEM) 200 MG [Suspect]
     Dosage: (ORAL)
     Route: 048
     Dates: end: 20061220
  2. DIGOXIN [Suspect]
     Dosage: (0.25 MG QD ORAL)
     Route: 048
     Dates: end: 20061220
  3. PREVISCAN [Concomitant]
  4. ATACAND [Concomitant]
  5. LASIX [Concomitant]
  6. BEFIZAL [Concomitant]
  7. GLUCOPHAGE [Concomitant]
  8. LOGIRENE [Concomitant]
  9. SERC [Concomitant]
  10. PERMIXON [Concomitant]
  11. ZOLPIDEM TARTRATE [Concomitant]
  12. EFFEXOR [Concomitant]
  13. INSULATARD [Concomitant]
  14. VIT K ANTAGONISTS [Concomitant]

REACTIONS (5)
  - BRADYCARDIA [None]
  - CEREBROVASCULAR ACCIDENT [None]
  - LOSS OF CONSCIOUSNESS [None]
  - MALAISE [None]
  - MULTIPLE DRUG OVERDOSE [None]
